FAERS Safety Report 4929551-8 (Version None)
Quarter: 2006Q1

REPORT INFORMATION
  Report Type: 
  Country: None (occurrence: None)
  Receive Date: 20060223
  Receipt Date: 20060210
  Transmission Date: 20060701
  Serious: Yes (Other)
  Sender: FDA-Public Use
  Company Number: 2006021556

PATIENT
  Sex: Male

DRUGS (10)
  1. VIAGRA [Suspect]
     Indication: ERECTILE DYSFUNCTION
     Dosage: 25 MG (25 MG, 1 AS NECESSARY), ORAL
     Route: 048
     Dates: start: 20030101
  2. DETROL LA [Suspect]
     Indication: URINARY INCONTINENCE
     Dosage: 4 MG, 1 D, ORAL
     Route: 048
     Dates: start: 20050101
  3. GLYBURIDE [Concomitant]
  4. AVANDIA [Concomitant]
  5. ZETIA [Concomitant]
  6. LISINOPRIL [Concomitant]
  7. VYTORIN [Concomitant]
  8. ISONIAZID [Concomitant]
  9. LEFLUNOMIDE [Concomitant]
  10. TAMSULOSIN HCL [Concomitant]

REACTIONS (7)
  - ANAL DISCOMFORT [None]
  - ARTERIAL OCCLUSIVE DISEASE [None]
  - DRUG INEFFECTIVE [None]
  - DYSURIA [None]
  - PROSTATE CANCER [None]
  - RECTAL HAEMORRHAGE [None]
  - URINARY INCONTINENCE [None]
